FAERS Safety Report 14466500 (Version 2)
Quarter: 2018Q2

REPORT INFORMATION
  Report Type: Spontaneous
  Country: US (occurrence: US)
  Receive Date: 20180131
  Receipt Date: 20180422
  Transmission Date: 20180711
  Serious: Yes (Other)
  Sender: FDA-Public Use
  Company Number: US-APOTEX-2018AP005488

PATIENT
  Age: 49 Year
  Sex: Male

DRUGS (1)
  1. BUPROPION HYDROCHLORIDE. [Suspect]
     Active Substance: BUPROPION HYDROCHLORIDE
     Indication: DEPRESSION
     Dosage: 100 MG, BID
     Route: 065

REACTIONS (4)
  - Insomnia [Unknown]
  - Hallucination, auditory [Recovered/Resolved]
  - Drug abuse [Unknown]
  - Anger [Unknown]
